FAERS Safety Report 5385469-0 (Version None)
Quarter: 2007Q3

REPORT INFORMATION
  Report Type: 
  Country: None (occurrence: None)
  Receive Date: 20070706
  Receipt Date: 20070706
  Transmission Date: 20080115
  Serious: Yes (Hospitalization)
  Sender: FDA-Public Use
  Company Number: None

PATIENT
  Age: 84 Year
  Sex: Male

DRUGS (1)
  1. DOCETAXEL [Suspect]
     Indication: PROSTATE CANCER
     Dosage: Q3WEEKS
     Dates: start: 20070316, end: 20070409

REACTIONS (4)
  - ASTHENIA [None]
  - DECREASED APPETITE [None]
  - NEUTROPENIA [None]
  - WEIGHT DECREASED [None]
